FAERS Safety Report 17916268 (Version 1)
Quarter: 2020Q2

REPORT INFORMATION
  Report Type: Spontaneous
  Country: US (occurrence: US)
  Receive Date: 20200619
  Receipt Date: 20200619
  Transmission Date: 20200714
  Serious: Yes (Death)
  Sender: FDA-Public Use
  Company Number: None

PATIENT
  Age: 85 Year
  Sex: Male
  Weight: 83.25 kg

DRUGS (6)
  1. GLIMEPIRIDE. [Concomitant]
     Active Substance: GLIMEPIRIDE
  2. ATORVASTATIN [Concomitant]
     Active Substance: ATORVASTATIN
  3. ASPIRIN 81 [Concomitant]
     Active Substance: ASPIRIN
  4. KEPPRA [Concomitant]
     Active Substance: LEVETIRACETAM
  5. ENALAPRIL [Concomitant]
     Active Substance: ENALAPRIL
  6. KEYTRUDA [Suspect]
     Active Substance: PEMBROLIZUMAB
     Indication: LUNG CARCINOMA CELL TYPE UNSPECIFIED STAGE IV
     Route: 042
     Dates: start: 20200304, end: 20200604

REACTIONS (11)
  - Pain in extremity [None]
  - Parkinson^s disease [None]
  - Constipation [None]
  - Oral disorder [None]
  - Dysphagia [None]
  - Musculoskeletal pain [None]
  - Musculoskeletal disorder [None]
  - Urinary incontinence [None]
  - Ageusia [None]
  - Balance disorder [None]
  - Decreased appetite [None]

NARRATIVE: CASE EVENT DATE: 20200311
